FAERS Safety Report 20958579 (Version 1)
Quarter: 2022Q2

REPORT INFORMATION
  Report Type: Spontaneous
  Country: IN (occurrence: IN)
  Receive Date: 20220614
  Receipt Date: 20220614
  Transmission Date: 20220720
  Serious: Yes (Hospitalization)
  Sender: FDA-Public Use
  Company Number: IN-TORRENT-00003085

PATIENT
  Age: 24 Year
  Sex: Female

DRUGS (5)
  1. ESOMEPRAZOLE [Suspect]
     Active Substance: ESOMEPRAZOLE
     Indication: Product used for unknown indication
     Dosage: AT NIGHT
     Route: 042
     Dates: start: 20220529
  2. DNS/RL [Concomitant]
     Indication: Product used for unknown indication
     Dosage: ADDITION TO MULTI VITAMIN CONCENTRATE (MVI) IV AT 80 ML/HOUR
     Route: 042
  3. CEFOPERAZONE SODIUM\SULBACTAM SODIUM [Concomitant]
     Active Substance: CEFOPERAZONE SODIUM\SULBACTAM SODIUM
     Indication: Product used for unknown indication
     Dosage: 1.5 G IV BD (TWICE A DAY)
     Route: 042
  4. ONDANSETRON HYDROCHLORIDE [Concomitant]
     Active Substance: ONDANSETRON HYDROCHLORIDE
     Indication: Product used for unknown indication
     Dosage: 8 MG IV TDS (THRICE A DAY)
     Route: 042
  5. Contramol [Concomitant]
     Indication: Product used for unknown indication
     Dosage: 100 MG + 100 CC NS IV TDS (THRICE A DAY)
     Route: 042

REACTIONS (1)
  - Hypoglycaemia [Unknown]

NARRATIVE: CASE EVENT DATE: 20220530
